FAERS Safety Report 15836507 (Version 4)
Quarter: 2023Q1

REPORT INFORMATION
  Report Type: Spontaneous
  Country: US (occurrence: US)
  Receive Date: 20190117
  Receipt Date: 20230310
  Transmission Date: 20230418
  Serious: Yes (Hospitalization)
  Sender: FDA-Public Use
  Company Number: US-BIOGEN-2019BI00683638

PATIENT
  Age: 69 Year
  Sex: Female

DRUGS (3)
  1. PLEGRIDY [Suspect]
     Active Substance: PEGINTERFERON BETA-1A
     Indication: Multiple sclerosis
     Route: 050
  2. PLEGRIDY [Suspect]
     Active Substance: PEGINTERFERON BETA-1A
     Route: 050
     Dates: start: 20150511
  3. PLEGRIDY [Suspect]
     Active Substance: PEGINTERFERON BETA-1A
     Route: 050
     Dates: start: 20150526

REACTIONS (5)
  - Lower limb fracture [Not Recovered/Not Resolved]
  - Fall [Recovered/Resolved]
  - Osteoporosis [Not Recovered/Not Resolved]
  - Blood sodium decreased [Unknown]
  - Ankle fracture [Unknown]

NARRATIVE: CASE EVENT DATE: 20180914
